FAERS Safety Report 4902407-2 (Version None)
Quarter: 2006Q1

REPORT INFORMATION
  Report Type: 
  Country: None (occurrence: None)
  Receive Date: 20060203
  Receipt Date: 20060203
  Transmission Date: 20060701
  Serious: Yes (Hospitalization, Other)
  Sender: FDA-Public Use
  Company Number: None

PATIENT
  Sex: Male
  Weight: 73.6 kg

DRUGS (8)
  1. CARBOPLATIN [Suspect]
     Indication: SMALL CELL LUNG CANCER STAGE UNSPECIFIED
     Dosage: 1422 MG
     Dates: start: 20050711, end: 20050824
  2. CISPLATIN [Suspect]
     Dosage: 240 MG
     Dates: start: 20050527, end: 20050624
  3. ETOPOSIDE [Suspect]
     Dosage: 1800 MG
     Dates: start: 20050711, end: 20050824
  4. IRINOTECAN (CPT-11, CAMPTOSAR) [Suspect]
     Dosage: 520 MG
     Dates: start: 20050527, end: 20050624
  5. CYPROHEPATIDINE HCL [Concomitant]
  6. ASPIRIN [Concomitant]
  7. FLUOXETINE HCL [Concomitant]
  8. METFORMIN HCL [Concomitant]

REACTIONS (4)
  - ASTHENIA [None]
  - DIFFICULTY IN WALKING [None]
  - FATIGUE [None]
  - HYDROCEPHALUS [None]
